FAERS Safety Report 24916859 (Version 1)
Quarter: 2025Q1

REPORT INFORMATION
  Report Type: Spontaneous
  Country: US (occurrence: None)
  Receive Date: 20250131
  Receipt Date: 20250131
  Transmission Date: 20250408
  Serious: Yes (Death)
  Sender: FDA-CTU
  Company Number: None

PATIENT
  Age: 71 Year
  Sex: Female

DRUGS (11)
  1. COLLAGENASE SANTYL [Suspect]
     Active Substance: COLLAGENASE CLOSTRIDIUM HISTOLYTICUM
     Indication: Limb reduction defect
     Dosage: ?250 G GRAMS DAILY TOPICAL
     Route: 061
     Dates: start: 20241107, end: 20250125
  2. COLLAGENASE SANTYL [Suspect]
     Active Substance: COLLAGENASE CLOSTRIDIUM HISTOLYTICUM
     Indication: Lymphangitis
  3. Metoprolol ER Succinate 50 mg [Concomitant]
  4. JARDIANCE [Concomitant]
     Active Substance: EMPAGLIFLOZIN
  5. GABAPENTIN [Concomitant]
     Active Substance: GABAPENTIN
  6. ELIQUIS [Concomitant]
     Active Substance: APIXABAN
  7. ASPIRIN [Concomitant]
     Active Substance: ASPIRIN
  8. FUROSEMIDE [Concomitant]
     Active Substance: FUROSEMIDE
  9. Nitroglycerin 0.4mg SL [Concomitant]
  10. ATORVASTATIN [Concomitant]
     Active Substance: ATORVASTATIN
  11. AMIODARONE [Concomitant]
     Active Substance: AMIODARONE

REACTIONS (1)
  - Disease progression [None]

NARRATIVE: CASE EVENT DATE: 20250126
